FAERS Safety Report 11262293 (Version 2)
Quarter: 2016Q3

REPORT INFORMATION
  Report Type: Spontaneous
  Country: US (occurrence: US)
  Receive Date: 20150710
  Receipt Date: 20160706
  Transmission Date: 20161109
  Serious: Yes (Other)
  Sender: FDA-Public Use
  Company Number: US-PURDUE-USA-2015-0123309

PATIENT
  Age: 52 Year
  Sex: Female
  Weight: 97.51 kg

DRUGS (2)
  1. BUTRANS [Suspect]
     Active Substance: BUPRENORPHINE
     Indication: LUMBAR RADICULOPATHY
  2. BUTRANS [Suspect]
     Active Substance: BUPRENORPHINE
     Indication: INTERVERTEBRAL DISC DEGENERATION
     Dosage: 10 MCG/HR, WEEKLY
     Route: 062
     Dates: start: 20150430, end: 20150506

REACTIONS (2)
  - Urinary retention [Recovered/Resolved]
  - Dysuria [Unknown]

NARRATIVE: CASE EVENT DATE: 20150505
